FAERS Safety Report 8003553-X (Version None)
Quarter: 2011Q4

REPORT INFORMATION
  Report Type: 
  Country: None (occurrence: None)
  Receive Date: 20111222
  Receipt Date: 20111209
  Transmission Date: 20120403
  Serious: Yes (Hospitalization, Disabling, Other)
  Sender: FDA-Public Use
  Company Number: MX-SANOFI-AVENTIS-2011SA080924

PATIENT
  Age: 49 Year
  Sex: Male
  Weight: 100 kg

DRUGS (4)
  1. METFORMIN HCL [Concomitant]
     Indication: TYPE 2 DIABETES MELLITUS
     Route: 048
     Dates: start: 20020101
  2. LANTUS [Suspect]
     Indication: TYPE 2 DIABETES MELLITUS
     Route: 058
     Dates: start: 20101201
  3. GLYBURIDE [Concomitant]
     Indication: TYPE 2 DIABETES MELLITUS
     Route: 048
     Dates: start: 20020101
  4. PENTOXIFYLLINE [Concomitant]
     Route: 048
     Dates: start: 20080101

REACTIONS (7)
  - LOSS OF CONSCIOUSNESS [None]
  - SKIN ULCER [None]
  - DYSAESTHESIA [None]
  - PYREXIA [None]
  - PARAESTHESIA [None]
  - LOCALISED INFECTION [None]
  - PHANTOM PAIN [None]
